FAERS Safety Report 11816236 (Version 1)
Quarter: 2015Q4

REPORT INFORMATION
  Report Type: Report from Study
  Country: FR (occurrence: FR)
  Receive Date: 20151209
  Receipt Date: 20151209
  Transmission Date: 20160305
  Serious: Yes (Hospitalization, Disabling)
  Sender: FDA-Public Use
  Company Number: FR-BRISTOL-MYERS SQUIBB COMPANY-BMS-2015-020500

PATIENT
  Age: 53 Year
  Sex: Male
  Weight: 85 kg

DRUGS (12)
  1. EUPRESSYL                          /00631801/ [Concomitant]
     Active Substance: URAPIDIL
     Indication: PRODUCT USED FOR UNKNOWN INDICATION
     Route: 065
  2. DACLATASVIR DIHYDROCHLORIDE [Suspect]
     Active Substance: DACLATASVIR DIHYDROCHLORIDE
     Indication: HEPATITIS C VIRUS TEST
     Dosage: 30 MG, QD
     Route: 048
     Dates: start: 20140514, end: 201407
  3. COPEGUS [Concomitant]
     Active Substance: RIBAVIRIN
     Indication: HEPATITIS C VIRUS TEST
     Dosage: 800 MG, QD
     Route: 048
     Dates: start: 20140120, end: 201407
  4. SOVALDI [Concomitant]
     Active Substance: SOFOSBUVIR
     Indication: HEPATITIS C VIRUS TEST
     Dosage: 400 MG, QD
     Route: 048
     Dates: start: 20140120, end: 201407
  5. RAMIPRIL. [Concomitant]
     Active Substance: RAMIPRIL
     Indication: METABOLIC SYNDROME
     Dosage: 10 MG, QD
     Route: 065
     Dates: start: 2009
  6. INSPRA [Concomitant]
     Active Substance: EPLERENONE
     Indication: METABOLIC SYNDROME
     Dosage: 50 MG, QD
     Route: 065
     Dates: start: 2009
  7. MIRCERA [Concomitant]
     Active Substance: METHOXY POLYETHYLENE GLYCOL-EPOETIN BETA
     Indication: PRODUCT USED FOR UNKNOWN INDICATION
     Route: 065
  8. PEGASYS [Concomitant]
     Active Substance: PEGINTERFERON ALFA-2A
     Indication: HEPATITIS C
     Dosage: 180 ?G, QWK
     Route: 058
     Dates: start: 20140120, end: 20140130
  9. APROVEL [Concomitant]
     Active Substance: IRBESARTAN
     Indication: METABOLIC SYNDROME
     Dosage: 75 MG, QD
     Route: 065
     Dates: start: 2009
  10. SOFOSBUVIR [Suspect]
     Active Substance: SOFOSBUVIR
     Indication: PRODUCT USED FOR UNKNOWN INDICATION
     Dosage: UNK
     Route: 065
     Dates: end: 201407
  11. SUBUTEX [Concomitant]
     Active Substance: BUPRENORPHINE HYDROCHLORIDE
     Indication: DRUG WITHDRAWAL MAINTENANCE THERAPY
     Dosage: 6 MG, QD
     Route: 065
  12. CRESTOR [Concomitant]
     Active Substance: ROSUVASTATIN CALCIUM
     Indication: METABOLIC SYNDROME
     Dosage: 10 MG, QD
     Route: 065
     Dates: start: 2009

REACTIONS (4)
  - Ascites [Not Recovered/Not Resolved]
  - Portal hypertension [Not Recovered/Not Resolved]
  - Glomerulonephritis [Recovered/Resolved]
  - Hypoalbuminaemia [Not Recovered/Not Resolved]

NARRATIVE: CASE EVENT DATE: 201408
